FAERS Safety Report 22130010 (Version 1)
Quarter: 2023Q1

REPORT INFORMATION
  Report Type: Spontaneous
  Country: CN (occurrence: CN)
  Receive Date: 20230323
  Receipt Date: 20230323
  Transmission Date: 20230418
  Serious: Yes (Other)
  Sender: FDA-Public Use
  Company Number: CN-GLAXOSMITHKLINE-CN2023APC042189

PATIENT

DRUGS (4)
  1. FLUTICASONE PROPIONATE [Suspect]
     Active Substance: FLUTICASONE PROPIONATE
     Indication: Antiinflammatory therapy
     Dosage: 4 ML, TID
     Route: 045
     Dates: start: 20230310, end: 20230311
  2. FLUTICASONE PROPIONATE [Suspect]
     Active Substance: FLUTICASONE PROPIONATE
     Indication: Dyspnoea
  3. IPRATROPIUM BROMIDE [Concomitant]
     Active Substance: IPRATROPIUM BROMIDE
     Indication: Antiinflammatory therapy
     Dosage: 2.5 G, TID
     Route: 045
     Dates: start: 20230310, end: 20230311
  4. IPRATROPIUM BROMIDE [Concomitant]
     Active Substance: IPRATROPIUM BROMIDE
     Indication: Dyspnoea

REACTIONS (7)
  - Leukoplakia oral [Recovering/Resolving]
  - Dry throat [Recovering/Resolving]
  - Dysphonia [Recovering/Resolving]
  - Leukoderma [Recovering/Resolving]
  - Oral fungal infection [Recovering/Resolving]
  - Dry mouth [Recovering/Resolving]
  - Pharyngeal leukoplakia [Recovering/Resolving]

NARRATIVE: CASE EVENT DATE: 20230311
